FAERS Safety Report 7201166-0 (Version None)
Quarter: 2010Q4

REPORT INFORMATION
  Report Type: 
  Country: None (occurrence: None)
  Receive Date: 20101229
  Receipt Date: 20101216
  Transmission Date: 20110411
  Serious: Yes (Other)
  Sender: FDA-Public Use
  Company Number: NL-AMGEN-NLDSP2010007874

PATIENT

DRUGS (5)
  1. ENBREL [Suspect]
     Indication: JUVENILE ARTHRITIS
     Dosage: UNK
     Route: 058
     Dates: start: 20100316, end: 20101125
  2. METHOTREXATE [Concomitant]
     Indication: JUVENILE ARTHRITIS
     Dosage: 25 MG, UNK
     Route: 058
     Dates: start: 20090101, end: 20100701
  3. METHOTREXATE [Concomitant]
     Dosage: 15 MG, UNK
     Route: 048
     Dates: start: 20100701, end: 20100801
  4. METHOTREXATE [Concomitant]
     Dosage: 20 MG, UNK
     Route: 048
     Dates: start: 20100801, end: 20100801
  5. FOLIC ACID [Concomitant]
     Dosage: 5 MG, WEEKLY

REACTIONS (2)
  - JUVENILE ARTHRITIS [None]
  - UVEITIS [None]
